FAERS Safety Report 8624829-9 (Version None)
Quarter: 2012Q3

REPORT INFORMATION
  Report Type: 
  Country: None (occurrence: None)
  Receive Date: 20120827
  Receipt Date: 20120703
  Transmission Date: 20120928
  Serious: No
  Sender: FDA-Public Use
  Company Number: US-009507513-1207USA009534

PATIENT

DRUGS (1)
  1. COPPERTONE ULTRAGUARD LOTION SPF 30 [Suspect]
     Indication: PRODUCT USED FOR UNKNOWN INDICATION
     Dosage: UNK, UNKNOWN
     Route: 061

REACTIONS (3)
  - HYPERSENSITIVITY [None]
  - EYE SWELLING [None]
  - LIP SWELLING [None]
